FAERS Safety Report 17754042 (Version 2)
Quarter: 2020Q2

REPORT INFORMATION
  Report Type: Report from Study
  Country: AU (occurrence: AU)
  Receive Date: 20200506
  Receipt Date: 20200511
  Transmission Date: 20200714
  Serious: Yes (Hospitalization)
  Sender: FDA-Public Use
  Company Number: AU-BRISTOL-MYERS SQUIBB COMPANY-BMS-2020-035874

PATIENT
  Age: 72 Year
  Sex: Female
  Weight: 58.6 kg

DRUGS (3)
  1. NIVOLUMAB [Suspect]
     Active Substance: NIVOLUMAB
     Indication: VAGINAL CANCER METASTATIC
     Dosage: 176 MILLIGRAM
     Route: 042
     Dates: start: 20190606, end: 20200310
  2. CIPROFLOXACIN. [Concomitant]
     Active Substance: CIPROFLOXACIN
     Indication: PROPHYLAXIS
     Dosage: UNK
     Route: 065
     Dates: start: 20200410
  3. IPILIMUMAB [Suspect]
     Active Substance: IPILIMUMAB
     Indication: VAGINAL CANCER METASTATIC
     Dosage: 68 MILLIGRAM
     Route: 042
     Dates: start: 20190606, end: 20190930

REACTIONS (1)
  - Fall [Recovered/Resolved with Sequelae]

NARRATIVE: CASE EVENT DATE: 20200501
